FAERS Safety Report 19606832 (Version 2)
Quarter: 2021Q3

REPORT INFORMATION
  Report Type: Report from Study
  Country: FR (occurrence: FR)
  Receive Date: 20210725
  Receipt Date: 20210824
  Transmission Date: 20211014
  Serious: Yes (Other)
  Sender: FDA-Public Use
  Company Number: FR-ROCHE-2826362

PATIENT
  Age: 43 Year
  Sex: Female

DRUGS (7)
  1. SEDATIF PC [Concomitant]
     Active Substance: HOMEOPATHICS
     Dosage: 2 IN THE MORNING, 1 IN THE AFTERNOON
     Dates: start: 20210306
  2. CISPLATIN. [Concomitant]
     Active Substance: CISPLATIN
  3. XANAX [Concomitant]
     Active Substance: ALPRAZOLAM
     Dates: end: 20210305
  4. PARACETAMOL [Concomitant]
     Active Substance: ACETAMINOPHEN
     Dosage: ALD
  5. MAGNE B6 [Concomitant]
     Active Substance: MAGNESIUM\PYRIDOXINE
     Dates: start: 20210305
  6. IUD NOS [Concomitant]
     Active Substance: COPPER OR LEVONORGESTREL
  7. ATEZOLIZUMAB. [Suspect]
     Active Substance: ATEZOLIZUMAB
     Indication: CERVIX CARCINOMA
     Dosage: RECEIVED LAST DOSE OF ATEZOLIZUMAB IV 1200 MG FROM 25?OCT?2020 FOR A CUMULATIVE DOSAGE OF 9600 MG BE
     Route: 041
     Dates: start: 20201025

REACTIONS (1)
  - Proctitis [Recovered/Resolved]

NARRATIVE: CASE EVENT DATE: 20210318
